FAERS Safety Report 7996165-5 (Version None)
Quarter: 2011Q4

REPORT INFORMATION
  Report Type: 
  Country: None (occurrence: None)
  Receive Date: 20111220
  Receipt Date: 20111214
  Transmission Date: 20120403
  Serious: Yes (Hospitalization, Other)
  Sender: FDA-Public Use
  Company Number: PHHY2011US20103

PATIENT
  Sex: Female

DRUGS (4)
  1. PERCOCET [Concomitant]
     Indication: PAIN
     Dosage: UNK
     Route: 048
     Dates: start: 20090101
  2. MS CONTIN [Concomitant]
     Dosage: 100 MG, 8 TO 12 HRS PRN
     Route: 048
     Dates: start: 20090101
  3. EXJADE [Suspect]
     Dosage: 1375 MG, QD
     Route: 048
  4. EXJADE [Suspect]
     Indication: IRON OVERLOAD
     Dosage: 1000 MG, QD
     Route: 048
     Dates: start: 20100601, end: 20110215

REACTIONS (6)
  - ROAD TRAFFIC ACCIDENT [None]
  - DYSPEPSIA [None]
  - SICKLE CELL ANAEMIA WITH CRISIS [None]
  - APHONIA [None]
  - NAUSEA [None]
  - VOMITING [None]
